FAERS Safety Report 8612285-6 (Version None)
Quarter: 2012Q3

REPORT INFORMATION
  Report Type: 
  Country: None (occurrence: None)
  Receive Date: 20120810
  Receipt Date: 20120810
  Transmission Date: 20120928
  Serious: No
  Sender: FDA-Public Use
  Company Number: None

PATIENT
  Sex: Male
  Weight: 72.5755 kg

DRUGS (2)
  1. TRAMADOL HCL [Suspect]
     Indication: MUSCULOSKELETAL PAIN
     Dosage: 2 TABS 100MG TWICE A DAY PO
     Route: 048
  2. CITALOPRAM HYDROBROMIDE [Suspect]
     Indication: MOOD ALTERED
     Dosage: 1 TAB ONCE A DAY PO 18 MONTHS
     Route: 048

REACTIONS (3)
  - TREMOR [None]
  - CONVULSION [None]
  - FALL [None]
